FAERS Safety Report 5476366-0 (Version None)
Quarter: 2007Q4

REPORT INFORMATION
  Report Type: 
  Country: None (occurrence: None)
  Receive Date: 20071003
  Receipt Date: 20070924
  Transmission Date: 20080405
  Serious: Yes (Other)
  Sender: FDA-Public Use
  Company Number: PT-PFIZER INC-2007078630

PATIENT
  Sex: Female
  Weight: 61 kg

DRUGS (1)
  1. CHAMPIX [Suspect]
     Indication: SMOKING CESSATION THERAPY
     Route: 048

REACTIONS (6)
  - FLUID RETENTION [None]
  - HYPOTHYROIDISM [None]
  - OEDEMA PERIPHERAL [None]
  - POLYURIA [None]
  - URINE OUTPUT DECREASED [None]
  - WEIGHT INCREASED [None]
